FAERS Safety Report 24044784 (Version 1)
Quarter: 2024Q3

REPORT INFORMATION
  Report Type: Spontaneous
  Country: CN (occurrence: CN)
  Receive Date: 20240703
  Receipt Date: 20240703
  Transmission Date: 20241017
  Serious: Yes (Other)
  Sender: RANBAXY
  Company Number: CN-SUN PHARMACEUTICAL INDUSTRIES LTD-2024R1-450364

PATIENT
  Age: 73 Year
  Sex: Male

DRUGS (4)
  1. INSULIN NOS [Suspect]
     Active Substance: INSULIN NOS
     Indication: Ketoacidosis
     Dosage: 10 U WAS ADDED INTO 10 ML OF 0.9 %
     Route: 042
  2. INSULIN NOS [Suspect]
     Active Substance: INSULIN NOS
     Dosage: 50 U WAS ADDED INTO 50 ML OF 0.9 %
     Route: 042
  3. SODIUM CHLORIDE [Suspect]
     Active Substance: SODIUM CHLORIDE
     Indication: Ketoacidosis
     Dosage: 10 ML OF 0.9 %
     Route: 042
  4. SODIUM CHLORIDE [Suspect]
     Active Substance: SODIUM CHLORIDE
     Dosage: 50 ML OF 0.9 %
     Route: 042

REACTIONS (1)
  - Therapeutic response decreased [Unknown]
